FAERS Safety Report 10288277 (Version 1)
Quarter: 2014Q3

REPORT INFORMATION
  Report Type: Report from Study
  Country: AR (occurrence: AR)
  Receive Date: 20140709
  Receipt Date: 20140709
  Transmission Date: 20150326
  Serious: Yes (Disabling, Other)
  Sender: FDA-Public Use
  Company Number: AR-ABBVIE-14P-007-1256218-00

PATIENT
  Sex: Male

DRUGS (1)
  1. HUMIRA [Suspect]
     Active Substance: ADALIMUMAB
     Indication: ANKYLOSING SPONDYLITIS
     Route: 058
     Dates: start: 20070401

REACTIONS (6)
  - Hypertension [Unknown]
  - Stress [Unknown]
  - Lower limb fracture [Unknown]
  - Road traffic accident [Unknown]
  - Amnesia [Unknown]
  - Depression [Unknown]
